FAERS Safety Report 6838810-3 (Version None)
Quarter: 2010Q3

REPORT INFORMATION
  Report Type: 
  Country: None (occurrence: None)
  Receive Date: 20100709
  Receipt Date: 20100624
  Transmission Date: 20110219
  Serious: Yes (Hospitalization)
  Sender: FDA-Public Use
  Company Number: 014798

PATIENT
  Sex: Male

DRUGS (1)
  1. KEPPRA [Suspect]
     Dosage: LOWER DOSE

REACTIONS (3)
  - BLINDNESS [None]
  - NERVOUS SYSTEM DISORDER [None]
  - STATUS EPILEPTICUS [None]
